FAERS Safety Report 6542317-0 (Version None)
Quarter: 2010Q1

REPORT INFORMATION
  Report Type: 
  Country: None (occurrence: None)
  Receive Date: 20100119
  Receipt Date: 20100113
  Transmission Date: 20100710
  Serious: Yes (Other)
  Sender: FDA-Public Use
  Company Number: DE-MERCK-0910DEU00073

PATIENT
  Age: 72 Year
  Sex: Female

DRUGS (4)
  1. JANUMET [Suspect]
     Indication: TYPE 2 DIABETES MELLITUS
     Route: 048
     Dates: start: 20090601
  2. ALLOPURINOL [Concomitant]
     Route: 048
  3. ZOCOR [Concomitant]
     Route: 048
  4. OMEPRAZOLE [Concomitant]
     Route: 048

REACTIONS (1)
  - CHRONIC LEUKAEMIA [None]
